FAERS Safety Report 23916372 (Version 7)
Quarter: 2024Q3

REPORT INFORMATION
  Report Type: Spontaneous
  Country: US (occurrence: US)
  Receive Date: 20240529
  Receipt Date: 20240918
  Transmission Date: 20241016
  Serious: Yes (Hospitalization)
  Sender: BIOVITRUM
  Company Number: US-BIOVITRUM-2024-US-007799

PATIENT
  Age: 55 Year
  Sex: Female

DRUGS (2)
  1. VONJO [Suspect]
     Active Substance: PACRITINIB
     Indication: Myelofibrosis
     Dosage: ONCE DAILY
     Route: 048
  2. VONJO [Suspect]
     Active Substance: PACRITINIB
     Dosage: ONCE DAILY
     Route: 048

REACTIONS (13)
  - Arthritis [Unknown]
  - Rash [Unknown]
  - Off label use [Not Recovered/Not Resolved]
  - Pruritus [Unknown]
  - Bradyphrenia [Unknown]
  - Asthenia [Unknown]
  - Diarrhoea [Recovered/Resolved]
  - Hypoaesthesia [Unknown]
  - Bone pain [Unknown]
  - Feeding disorder [Unknown]
  - Pyrexia [Unknown]
  - Inflammation [Unknown]
  - Malaise [Unknown]

NARRATIVE: CASE EVENT DATE: 20240501
